FAERS Safety Report 5512049-6 (Version None)
Quarter: 2007Q4

REPORT INFORMATION
  Report Type: 
  Country: None (occurrence: None)
  Receive Date: 20071109
  Receipt Date: 20071108
  Transmission Date: 20080405
  Serious: Yes (Life-Threatening, Hospitalization)
  Sender: FDA-Public Use
  Company Number: JP-BOEHRINGER INGELHEIM PHARMACEUTICALS, INC.-2007-BP-23235NB

PATIENT
  Sex: Female
  Weight: 46.5 kg

DRUGS (9)
  1. MICARDIS [Suspect]
     Indication: HYPERTENSION
     Route: 048
     Dates: start: 20030114, end: 20070819
  2. ENALAPRIL MALEATE [Suspect]
     Indication: HYPERTENSION
     Route: 048
     Dates: start: 20060426
  3. VESICARE [Suspect]
     Indication: HYPERTONIC BLADDER
     Route: 048
     Dates: start: 20070221, end: 20070819
  4. SPIRONOLACTONE [Suspect]
     Indication: CARDIAC FAILURE CHRONIC
     Route: 048
     Dates: start: 20070801, end: 20070819
  5. DIART [Concomitant]
     Indication: CARDIAC FAILURE CHRONIC
     Route: 048
     Dates: start: 20020606
  6. PROMAC (POLAPREZINC) [Concomitant]
     Indication: GASTRITIS
     Route: 048
     Dates: start: 20040819
  7. GOODMIN [Concomitant]
     Indication: INSOMNIA
     Route: 048
     Dates: start: 20031021, end: 20070819
  8. MINZAIN [Concomitant]
     Indication: INSOMNIA
     Route: 048
     Dates: start: 20020522, end: 20070819
  9. HERPAMINE (DENOPAMINE) [Concomitant]
     Indication: CARDIAC FAILURE CHRONIC
     Route: 048
     Dates: start: 20021230

REACTIONS (4)
  - HYPERKALAEMIA [None]
  - HYPERTONIC BLADDER [None]
  - RENAL IMPAIRMENT [None]
  - SICK SINUS SYNDROME [None]
